FAERS Safety Report 10258103 (Version 2)
Quarter: 2014Q2

REPORT INFORMATION
  Report Type: Spontaneous
  Country: US (occurrence: US)
  Receive Date: 20140625
  Receipt Date: 20140625
  Transmission Date: 20141212
  Serious: Yes (Other)
  Sender: FDA-Public Use
  Company Number: US-NAPPMUNDI-USA-2014-0110774

PATIENT
  Age: 80 Year
  Sex: Female

DRUGS (4)
  1. SENOKOT-S 8.6 MG/50 MG [Suspect]
     Indication: PRODUCT USED FOR UNKNOWN INDICATION
     Dosage: 2-4 TABLET DAILY
     Route: 048
  2. SENOKOT-S 8.6 MG/50 MG [Suspect]
     Dosage: 2 TABLET, UNK
     Route: 048
  3. SENOKOT-S 8.6 MG/50 MG [Suspect]
     Dosage: 1 TABLET, UNK
     Route: 048
  4. EYE DROPS [Suspect]
     Indication: GLAUCOMA
     Dosage: UNKNOWN

REACTIONS (7)
  - Blood pressure increased [Unknown]
  - Insomnia [Unknown]
  - Faeces hard [Unknown]
  - Dry mouth [Unknown]
  - Drug ineffective [Recovered/Resolved]
  - Therapeutic response delayed [Unknown]
  - Constipation [Unknown]
